FAERS Safety Report 6393960-3 (Version None)
Quarter: 2009Q4

REPORT INFORMATION
  Report Type: 
  Country: None (occurrence: None)
  Receive Date: 20091008
  Receipt Date: 20090929
  Transmission Date: 20100525
  Serious: Yes (Other)
  Sender: FDA-Public Use
  Company Number: US-B.I. PHARMACEUTICALS,INC./RIDGEFIELD-2009-BP-10480BP

PATIENT
  Sex: Female
  Weight: 63.5 kg

DRUGS (16)
  1. MIRAPEX [Suspect]
     Indication: RESTLESS LEGS SYNDROME
     Dosage: 0.25 MG
     Route: 048
  2. NOVANTRONE [Suspect]
     Indication: MULTIPLE SCLEROSIS
     Dosage: 20 MG
     Route: 042
     Dates: start: 20050701, end: 20070901
  3. NOVANTRONE [Suspect]
     Dosage: 20 MG
     Route: 042
     Dates: start: 20050509, end: 20050509
  4. NOVANTRONE [Suspect]
     Dosage: 20 MG
     Route: 042
     Dates: start: 20050813, end: 20050813
  5. NOVANTRONE [Suspect]
     Dosage: 20 MG
     Route: 042
     Dates: start: 20060511, end: 20060511
  6. NOVANTRONE [Suspect]
     Dosage: 21 MG
     Route: 042
     Dates: start: 20060803, end: 20060803
  7. NOVANTRONE [Suspect]
     Dosage: 21 MG
     Route: 042
     Dates: start: 20061109, end: 20061109
  8. NOVANTRONE [Suspect]
     Dosage: 21 MG
     Route: 042
     Dates: start: 20070208, end: 20070208
  9. NOVANTRONE [Suspect]
     Dosage: 21 MG
     Route: 042
     Dates: start: 20070612, end: 20070612
  10. SINEMET [Suspect]
  11. BACLOFEN [Concomitant]
     Indication: MULTIPLE SCLEROSIS
  12. BETASERON [Concomitant]
     Indication: MULTIPLE SCLEROSIS
     Route: 058
     Dates: start: 20000101
  13. TETRACYCLINE [Concomitant]
  14. CLONAZEPAM [Concomitant]
  15. FOSAMAX [Concomitant]
     Route: 048
  16. TIZANIDINE HCL [Concomitant]

REACTIONS (6)
  - AORTIC VALVE INCOMPETENCE [None]
  - ATRIAL FIBRILLATION [None]
  - CARDIAC FAILURE CONGESTIVE [None]
  - CARDIOMYOPATHY [None]
  - EJECTION FRACTION DECREASED [None]
  - OEDEMA PERIPHERAL [None]
